FAERS Safety Report 9576921 (Version 1)
Quarter: 2013Q4

REPORT INFORMATION
  Report Type: Spontaneous
  Country: US (occurrence: US)
  Receive Date: 20131001
  Receipt Date: 20131001
  Transmission Date: 20140711
  Serious: Yes (Hospitalization)
  Sender: FDA-Public Use
  Company Number: US-BAXTER-2013BAX037784

PATIENT
  Sex: Female

DRUGS (2)
  1. DIANEAL LOW CALCIUM (ULTRABAG) [Suspect]
     Indication: RENAL FAILURE CHRONIC
     Route: 033
  2. PREDNISONE [Concomitant]
     Indication: GRANULOMATOSIS WITH POLYANGIITIS

REACTIONS (3)
  - Renal disorder [Recovering/Resolving]
  - Peritoneal dialysis complication [Unknown]
  - Procedural pain [Unknown]
